FAERS Safety Report 8645957 (Version 3)
Quarter: 2012Q4

REPORT INFORMATION
  Report Type: 
  Country: US (occurrence: US)
  Receive Date: 20120702
  Receipt Date: 20120830
  Transmission Date: 20130627
  Serious: Yes (Other)
  Sender: FDA-Public Use
  Company Number: US-BAYER-2012-063098

PATIENT
  Age: 63 Year
  Sex: Female
  Weight: 68.03 kg

DRUGS (6)
  1. BETASERON [Suspect]
     Indication: MULTIPLE SCLEROSIS
     Dosage: 0.25 mg, QOD
     Route: 058
     Dates: start: 20120421, end: 20120511
  2. VITAMIN D [Concomitant]
     Dosage: 1000 iu, UNK
  3. AMPYRA [Concomitant]
     Dosage: 10 mg, BID
     Dates: start: 201107
  4. PRILOSEC [Concomitant]
     Dosage: 1 UNK, UNK
  5. ZINC [Concomitant]
     Dosage: 50 mg, UNK
  6. SELENIUM [Concomitant]
     Dosage: 200 mg, UNK

REACTIONS (7)
  - Hypersensitivity [None]
  - Speech disorder [None]
  - Pruritus [Recovering/Resolving]
  - Lip swelling [Recovering/Resolving]
  - Stomatitis [Recovering/Resolving]
  - Injection site erythema [Not Recovered/Not Resolved]
  - Injection site haematoma [Not Recovered/Not Resolved]
